FAERS Safety Report 8985477 (Version 1)
Quarter: 2012Q4

REPORT INFORMATION
  Report Type: 
  Country: GB (occurrence: GB)
  Receive Date: 20121226
  Receipt Date: 20121226
  Transmission Date: 20130627
  Serious: Yes (Other)
  Sender: FDA-Public Use
  Company Number: GB-PFIZER INC-2012324575

PATIENT
  Age: 51 Year
  Sex: Female
  Weight: 56 kg

DRUGS (8)
  1. GABAPENTIN [Suspect]
     Dosage: UNK
     Dates: start: 20121001
  2. CO-CODAMOL [Concomitant]
     Dosage: UNK
     Dates: start: 20120815
  3. CODEINE PHOSPHATE [Concomitant]
     Dosage: UNK
     Dates: start: 20120815, end: 20121121
  4. LOSARTAN [Concomitant]
     Dosage: UNK
     Dates: start: 20120815
  5. ATORVASTATIN [Concomitant]
     Dosage: UNK
     Dates: start: 20120815
  6. CITALOPRAM [Concomitant]
     Dosage: UNK
     Dates: start: 20120815
  7. CO-TENIDONE [Concomitant]
     Dosage: UNK
     Dates: start: 20120821, end: 20121119
  8. TERBINAFINE [Concomitant]
     Dosage: UNK
     Dates: start: 20121030, end: 20121031

REACTIONS (2)
  - Rash [Recovered/Resolved]
  - Skin exfoliation [Recovered/Resolved]
